FAERS Safety Report 5839237-3 (Version None)
Quarter: 2008Q3

REPORT INFORMATION
  Report Type: 
  Country: None (occurrence: None)
  Receive Date: 20080806
  Receipt Date: 20080722
  Transmission Date: 20090109
  Serious: Yes (Hospitalization)
  Sender: FDA-Public Use
  Company Number: 8035146

PATIENT
  Age: 49 Year
  Sex: Female

DRUGS (8)
  1. KEPPRA [Suspect]
     Indication: EPILEPSY
     Dosage: 250 MG /D PO
     Route: 048
     Dates: start: 20080101, end: 20080629
  2. KEPPRA [Suspect]
     Indication: EPILEPSY
     Dosage: PO
     Route: 048
     Dates: start: 20080630, end: 20080717
  3. KEPPRA [Suspect]
     Indication: EPILEPSY
     Dosage: 1 G 2/D PO
     Route: 048
     Dates: start: 20080718
  4. DEPAKENE [Concomitant]
  5. DEPAKENE [Concomitant]
  6. URBANYL [Concomitant]
  7. URBANYL [Concomitant]
  8. SABRIL [Concomitant]

REACTIONS (3)
  - HAEMOGLOBIN DECREASED [None]
  - NEUTROPENIA [None]
  - PLATELET COUNT DECREASED [None]
